FAERS Safety Report 24172265 (Version 1)
Quarter: 2024Q3

REPORT INFORMATION
  Report Type: Spontaneous
  Country: US (occurrence: None)
  Receive Date: 20240803
  Receipt Date: 20240803
  Transmission Date: 20241016
  Serious: Yes (Other)
  Sender: Public
  Company Number: None

PATIENT
  Age: 62 Year
  Sex: Female

DRUGS (10)
  1. BACLOFEN [Suspect]
     Active Substance: BACLOFEN
     Indication: Myalgia
     Dosage: OTHER QUANTITY : 60 TABLET(S);?FREQUENCY : TWICE A DAY;?
     Route: 048
     Dates: start: 20240727
  2. Tizandine [Concomitant]
  3. DULOXETINE [Concomitant]
  4. GABAPENTIN [Concomitant]
  5. Lossartan [Concomitant]
  6. BACLOFEN [Concomitant]
  7. FARXIGA [Concomitant]
     Active Substance: DAPAGLIFLOZIN PROPANEDIOL
  8. METOPROLOL [Concomitant]
  9. IRON [Concomitant]
  10. VITAMIN B12 [Concomitant]
     Active Substance: CYANOCOBALAMIN

REACTIONS (6)
  - Accidental overdose [None]
  - Abnormal behaviour [None]
  - Miosis [None]
  - Fall [None]
  - Product use issue [None]
  - Confusional state [None]

NARRATIVE: CASE EVENT DATE: 20240727
